FAERS Safety Report 11349005 (Version 2)
Quarter: 2015Q3

REPORT INFORMATION
  Report Type: Spontaneous
  Country: CN (occurrence: CN)
  Receive Date: 20150807
  Receipt Date: 20150813
  Transmission Date: 20151125
  Serious: Yes (Hospitalization)
  Sender: FDA-Public Use
  Company Number: CN-009507513-1508CHN002634

PATIENT

DRUGS (1)
  1. NORFLOXACIN [Suspect]
     Active Substance: NORFLOXACIN
     Route: 048

REACTIONS (1)
  - Drug-induced liver injury [Unknown]
